FAERS Safety Report 24260823 (Version 11)
Quarter: 2024Q4

REPORT INFORMATION
  Report Type: Spontaneous
  Country: US (occurrence: US)
  Receive Date: 20240828
  Receipt Date: 20241019
  Transmission Date: 20250114
  Serious: Yes (Hospitalization, Other)
  Sender: SANOFI AVENTIS
  Company Number: US-SA-SAC20240822000275

PATIENT
  Age: 85 Year
  Sex: Female

DRUGS (48)
  1. CAMPATH [Suspect]
     Active Substance: ALEMTUZUMAB
     Indication: T-cell prolymphocytic leukaemia
     Dosage: 3 MG, 1X (ESCALATION PHASE)
     Route: 042
     Dates: start: 20240819, end: 20240819
  2. CAMPATH [Suspect]
     Active Substance: ALEMTUZUMAB
     Dosage: 10 MG, 1X (ESCALATION PHASE)
     Route: 042
     Dates: start: 20240820, end: 20240820
  3. CAMPATH [Suspect]
     Active Substance: ALEMTUZUMAB
     Dosage: 30 MG, TIW
     Route: 042
     Dates: start: 20240821, end: 20240905
  4. DIPHENHYDRAMINE [Concomitant]
     Active Substance: DIPHENHYDRAMINE
     Indication: Premedication
     Dosage: 50 MG, QD
     Route: 048
     Dates: start: 20240819, end: 20240821
  5. DIPHENHYDRAMINE [Concomitant]
     Active Substance: DIPHENHYDRAMINE
     Dosage: 25 MG, 1X
     Route: 048
     Dates: start: 20240823, end: 20240823
  6. DIPHENHYDRAMINE [Concomitant]
     Active Substance: DIPHENHYDRAMINE
     Dosage: 25 MG, 1X
     Route: 048
     Dates: start: 20240820, end: 20240820
  7. INSULIN GLARGINE [Concomitant]
     Active Substance: INSULIN GLARGINE
     Indication: Diabetes mellitus
     Dosage: 20 U, QD
     Route: 058
  8. INSULIN GLARGINE [Concomitant]
     Active Substance: INSULIN GLARGINE
     Dosage: 5 U
     Route: 058
     Dates: start: 20240823, end: 20240823
  9. METHYLPREDNISOLONE SODIUM SUCCINATE [Concomitant]
     Active Substance: METHYLPREDNISOLONE SODIUM SUCCINATE
     Indication: Premedication
     Dosage: 125 MG, QD
     Route: 042
     Dates: start: 20240819, end: 20240821
  10. METHYLPREDNISOLONE SODIUM SUCCINATE [Concomitant]
     Active Substance: METHYLPREDNISOLONE SODIUM SUCCINATE
     Dosage: 125 MG, QD
     Route: 042
     Dates: start: 20240823, end: 20240823
  11. METHYLPREDNISOLONE SODIUM SUCCINATE [Concomitant]
     Active Substance: METHYLPREDNISOLONE SODIUM SUCCINATE
     Dosage: 125 MG, QD
     Route: 042
     Dates: start: 20240827, end: 20240827
  12. MONTELUKAST [Concomitant]
     Active Substance: MONTELUKAST
     Indication: Premedication
     Dosage: 10 MG, QD
     Route: 048
     Dates: start: 20240819, end: 20240821
  13. OXYCODONE [Concomitant]
     Active Substance: OXYCODONE
     Indication: Pain
     Dosage: 5 MG, PRN (EVERY 4 HOURS AS NEEDED)
     Route: 048
     Dates: start: 20240819, end: 20240821
  14. ONDANSETRON [Concomitant]
     Active Substance: ONDANSETRON
     Indication: Premedication
     Dosage: 8 MG, QD
     Route: 042
     Dates: start: 20240819, end: 20240820
  15. ONDANSETRON [Concomitant]
     Active Substance: ONDANSETRON
     Indication: Vomiting
     Dosage: 8 MG, QD
     Route: 042
     Dates: start: 20240827, end: 20240827
  16. ONDANSETRON [Concomitant]
     Active Substance: ONDANSETRON
     Indication: Nausea
  17. ACETAMINOPHEN [Concomitant]
     Active Substance: ACETAMINOPHEN
     Indication: Premedication
     Dosage: 650 MG, QD
     Route: 048
     Dates: start: 20240819
  18. ACETAMINOPHEN [Concomitant]
     Active Substance: ACETAMINOPHEN
     Indication: Pain
     Dosage: 650 MG, Q4H
     Route: 048
     Dates: start: 20240825
  19. ENOXAPARIN [Concomitant]
     Active Substance: ENOXAPARIN
     Indication: Thrombosis prophylaxis
     Dosage: 40 MG, 1X
     Route: 058
     Dates: start: 20240819, end: 20240819
  20. FAMOTIDINE [Concomitant]
     Active Substance: FAMOTIDINE
     Indication: Premedication
     Dosage: 20 MG, QD
     Route: 042
     Dates: start: 20240819, end: 20240821
  21. FAMOTIDINE [Concomitant]
     Active Substance: FAMOTIDINE
     Dosage: UNK
  22. IBUPROFEN [Concomitant]
     Active Substance: IBUPROFEN
     Indication: Pain
     Dosage: 800 MG, PRN (TWICE A DAY AS NEEDED)
     Route: 048
     Dates: start: 20240819, end: 20240922
  23. SODIUM PHOSPHATE [SODIUM PHOSPHATE DIBASIC;SODIUM PHOSPHATE MONOBASIC] [Concomitant]
     Indication: Electrolyte substitution therapy
     Dosage: 30 MMOL, 1X
     Route: 042
     Dates: start: 20240825, end: 20240825
  24. INSULIN REGULAR [INSULIN PORCINE] [Concomitant]
     Indication: Diabetes mellitus
     Dosage: 5 U, QD
     Route: 058
     Dates: start: 20240823, end: 20240823
  25. SIMVASTATIN [Concomitant]
     Active Substance: SIMVASTATIN
     Indication: Dyslipidaemia
     Dosage: 40 MG, 1X
     Route: 048
     Dates: start: 20240820
  26. OMEPRAZOLE [Concomitant]
     Active Substance: OMEPRAZOLE
     Indication: Gastrooesophageal reflux disease
     Dosage: 20 MG, BID
     Route: 048
  27. URSODIOL [Concomitant]
     Active Substance: URSODIOL
     Indication: Dyslipidaemia
     Dosage: 300 MG, BID
     Route: 048
  28. MELATONIN [Concomitant]
     Active Substance: MELATONIN
     Indication: Insomnia
     Dosage: 6 MG, HS
     Route: 048
     Dates: start: 20240819
  29. POTASSIUM CHLORIDE [Concomitant]
     Active Substance: POTASSIUM CHLORIDE
     Indication: Hypokalaemia
     Dosage: 40 MEQ, 1X
     Route: 048
     Dates: start: 20240823, end: 20240823
  30. POTASSIUM CHLORIDE [Concomitant]
     Active Substance: POTASSIUM CHLORIDE
     Dosage: 40 MEQ, BID
     Route: 048
     Dates: start: 20240825, end: 20240825
  31. POTASSIUM CHLORIDE [Concomitant]
     Active Substance: POTASSIUM CHLORIDE
     Dosage: 20 MEQ, 1X
     Route: 048
     Dates: start: 20240828, end: 20240828
  32. TRAZODONE [Concomitant]
     Active Substance: TRAZODONE HYDROCHLORIDE
     Indication: Insomnia
     Dosage: 50 MG, QD
     Route: 048
     Dates: start: 20240820, end: 20240827
  33. TRAZODONE [Concomitant]
     Active Substance: TRAZODONE HYDROCHLORIDE
     Dosage: 75 MG, HS
     Route: 048
     Dates: start: 20240827
  34. POLYETHYLENE GLYCOLS [Concomitant]
     Active Substance: POLYETHYLENE GLYCOLS
     Indication: Constipation
     Dosage: 1 DF, 1X
     Route: 048
     Dates: start: 20240825, end: 20240825
  35. LEVOFLOXACIN [Concomitant]
     Active Substance: LEVOFLOXACIN
     Indication: Antibiotic prophylaxis
     Dosage: 500 MG, QD
     Route: 048
     Dates: start: 20240820, end: 20240821
  36. LEVOFLOXACIN [Concomitant]
     Active Substance: LEVOFLOXACIN
     Dosage: 500 MG, QOD
     Route: 048
     Dates: start: 20240823
  37. ATOVAQUONE [Concomitant]
     Active Substance: ATOVAQUONE
     Indication: Pneumocystis jirovecii pneumonia
     Dosage: 1500 MG, QD
     Route: 048
     Dates: start: 20240819
  38. ALLOPURINOL [Concomitant]
     Active Substance: ALLOPURINOL
     Indication: Gout
     Dosage: 300 MG, QD
     Route: 048
     Dates: start: 20240819
  39. ACYCLOVIR [Concomitant]
     Active Substance: ACYCLOVIR
     Indication: Antiviral prophylaxis
     Dosage: 400 MG, BID
     Route: 048
     Dates: start: 20240819
  40. INSULIN ASPART [Concomitant]
     Active Substance: INSULIN ASPART
     Indication: Diabetes mellitus
     Dosage: SLIDING SCALE (2-8 UNITS) WITH MEALS AND AT BED TIME
     Route: 058
     Dates: start: 20240819
  41. INSULIN ASPART [Concomitant]
     Active Substance: INSULIN ASPART
     Dosage: 3 U, TID
     Route: 058
     Dates: start: 20240821
  42. ASPIRIN [Concomitant]
     Active Substance: ASPIRIN
     Indication: Antiplatelet therapy
     Dosage: 325 MG, 1X
     Route: 048
     Dates: start: 20240825, end: 20240825
  43. POTASSIUM PHOSPHATE [Concomitant]
     Active Substance: POTASSIUM PHOSPHATE
     Indication: Electrolyte substitution therapy
     Dosage: 30 MMOL, 1X
     Route: 042
     Dates: start: 20240829, end: 20240829
  44. POTASSIUM PHOSPHATE [Concomitant]
     Active Substance: POTASSIUM PHOSPHATE
     Dosage: 45 MMOL, 1X
     Route: 042
     Dates: start: 20240901, end: 20240901
  45. LOPERAMIDE [Concomitant]
     Active Substance: LOPERAMIDE
     Indication: Diarrhoea
     Dosage: 4 MG, 1X
     Route: 048
     Dates: start: 20240826, end: 20240826
  46. MAGNESIUM SULFATE [Concomitant]
     Active Substance: MAGNESIUM SULFATE
     Indication: Electrolyte substitution therapy
     Dosage: 4 G, QD
     Route: 042
     Dates: start: 20240829, end: 20240830
  47. MAGNESIUM SULFATE [Concomitant]
     Active Substance: MAGNESIUM SULFATE
     Dosage: 2 G, 1X
     Route: 042
     Dates: start: 20240902, end: 20240902
  48. MAGNESIUM OXIDE [Concomitant]
     Active Substance: MAGNESIUM OXIDE
     Indication: Electrolyte substitution therapy
     Dosage: 400 MG, QD
     Route: 048
     Dates: start: 20240831

REACTIONS (11)
  - Pneumonia [Unknown]
  - Pleural effusion [Unknown]
  - Pyrexia [Unknown]
  - Chills [Unknown]
  - Thrombocytopenia [Not Recovered/Not Resolved]
  - Dysarthria [Unknown]
  - Malaise [Unknown]
  - Pyrexia [Recovered/Resolved]
  - Chills [Recovered/Resolved]
  - Fatigue [Unknown]
  - Product use in unapproved indication [Unknown]

NARRATIVE: CASE EVENT DATE: 20240819
